FAERS Safety Report 10007145 (Version 2)
Quarter: 2014Q1

REPORT INFORMATION
  Report Type: Report from Study
  Country: US (occurrence: US)
  Receive Date: 20140313
  Receipt Date: 20140318
  Transmission Date: 20141002
  Serious: Yes (Hospitalization)
  Sender: FDA-Public Use
  Company Number: US-JNJFOC-20140305560

PATIENT
  Age: 17 Year
  Sex: Female
  Weight: 72.5 kg

DRUGS (19)
  1. REMICADE [Suspect]
     Indication: INFLAMMATORY BOWEL DISEASE
     Route: 042
     Dates: start: 20071114
  2. CLOBETASOL PROPIONATE [Concomitant]
     Route: 065
  3. FLAGYL [Concomitant]
     Route: 065
  4. FOLIC ACID [Concomitant]
     Route: 065
  5. IRON [Concomitant]
     Route: 065
  6. VITAMIN D3 [Concomitant]
     Route: 065
  7. NORETHINDRONE/ETHINYL ESTRADIOL [Concomitant]
     Route: 065
  8. BACTROBAN NASAL [Concomitant]
     Route: 065
  9. TRIAMCINOLONE ACETONIDE [Concomitant]
     Route: 065
  10. METHOTREXATE [Concomitant]
     Route: 065
  11. EMLA (LIDOCAINE/PRILOCAINE) [Concomitant]
     Route: 065
  12. AMITRIPTYLINE HYDROCHLORIDE [Concomitant]
     Route: 065
  13. DOVONEX [Concomitant]
     Route: 065
  14. PROTONIX [Concomitant]
     Route: 065
  15. SACCHAROMYCES BOULARDII [Concomitant]
     Route: 065
  16. ALBUTEROL SULFATE [Concomitant]
     Route: 065
  17. MONTELUKAST SODIUM [Concomitant]
     Route: 065
  18. MULTIPLE VITAMINS [Concomitant]
     Route: 065
  19. OMEGA-3 FATTY ACIDS [Concomitant]
     Route: 065

REACTIONS (1)
  - Clostridium difficile infection [Recovered/Resolved]
